FAERS Safety Report 19960293 (Version 1)
Quarter: 2021Q4

REPORT INFORMATION
  Report Type: Spontaneous
  Country: US (occurrence: US)
  Receive Date: 20211015
  Receipt Date: 20211015
  Transmission Date: 20220303
  Serious: Yes (Other)
  Sender: FDA-Public Use
  Company Number: US-ALXN-A202111234

PATIENT
  Age: 85 Year
  Sex: Male

DRUGS (3)
  1. ANDEXANET ALFA [Suspect]
     Active Substance: ANDEXANET ALFA
     Indication: Procoagulant therapy
     Dosage: UNK
     Route: 065
     Dates: start: 20210929
  2. HEPARIN [Suspect]
     Active Substance: HEPARIN SODIUM
     Indication: Product used for unknown indication
     Dosage: UNK
     Route: 058
     Dates: start: 20211001
  3. HEPARIN [Suspect]
     Active Substance: HEPARIN SODIUM
     Dosage: UNK
     Route: 058
     Dates: start: 20211002

REACTIONS (3)
  - Thrombosis [Unknown]
  - Platelet count decreased [Unknown]
  - Dysarthria [Unknown]

NARRATIVE: CASE EVENT DATE: 20211004
